FAERS Safety Report 7384278-0 (Version None)
Quarter: 2011Q1

REPORT INFORMATION
  Report Type: 
  Country: None (occurrence: None)
  Receive Date: 20110330
  Receipt Date: 20110324
  Transmission Date: 20110831
  Serious: Yes (Other)
  Sender: FDA-Public Use
  Company Number: DE-MERCK-1103DEU00126

PATIENT
  Age: 75 Year
  Sex: Male

DRUGS (1)
  1. COSOPT [Suspect]
     Indication: CATARACT
     Route: 047
     Dates: start: 20110201, end: 20110323

REACTIONS (6)
  - DYSGEUSIA [None]
  - OROPHARYNGEAL PAIN [None]
  - NAUSEA [None]
  - SOMNOLENCE [None]
  - ABDOMINAL DISCOMFORT [None]
  - FEELING ABNORMAL [None]
